FAERS Safety Report 11977025 (Version 1)
Quarter: 2016Q1

REPORT INFORMATION
  Report Type: Spontaneous
  Country: US (occurrence: US)
  Receive Date: 20160129
  Receipt Date: 20160129
  Transmission Date: 20160526
  Serious: No
  Sender: FDA-Public Use
  Company Number: US-PERRIGO-15US003442

PATIENT
  Sex: Male
  Weight: 108.84 kg

DRUGS (7)
  1. IBUPROFEN AND DIPHENHYDRAMINE CITRATE [Suspect]
     Active Substance: DIPHENHYDRAMINE CITRATE\IBUPROFEN
     Dosage: 2 TABLETS, QD AT BEDTIME
     Route: 048
     Dates: start: 2014, end: 20150321
  2. GLIPIZIDE. [Concomitant]
     Active Substance: GLIPIZIDE
     Indication: DIABETES MELLITUS
     Dosage: UNK
     Route: 065
  3. IBUPROFEN AND DIPHENHYDRAMINE CITRATE [Suspect]
     Active Substance: DIPHENHYDRAMINE CITRATE\IBUPROFEN
     Indication: INSOMNIA
     Dosage: 2 TABLETS, QD AT BEDTIME
     Route: 048
     Dates: start: 2013, end: 2013
  4. IBUPROFEN AND DIPHENHYDRAMINE CITRATE [Suspect]
     Active Substance: DIPHENHYDRAMINE CITRATE\IBUPROFEN
     Dosage: 2 TABLETS, QD AT BEDTIME
     Route: 048
     Dates: start: 2014, end: 2014
  5. KLONOPIN [Concomitant]
     Active Substance: CLONAZEPAM
     Indication: ANXIETY
     Dosage: UNK
     Route: 065
  6. NIFEDIPINE. [Concomitant]
     Active Substance: NIFEDIPINE
     Indication: HYPERTENSION
     Dosage: UNK
     Route: 065
  7. PHENERGAN W/ CODEINE [Suspect]
     Active Substance: CODEINE PHOSPHATE\PROMETHAZINE HYDROCHLORIDE
     Indication: NASOPHARYNGITIS
     Dosage: UNKNOWN , TID
     Route: 048
     Dates: start: 20150321

REACTIONS (4)
  - Feeling abnormal [Recovered/Resolved]
  - Incorrect drug administration duration [Recovered/Resolved]
  - Off label use [Recovered/Resolved]
  - Incorrect drug administration duration [None]

NARRATIVE: CASE EVENT DATE: 2013
